FAERS Safety Report 17667888 (Version 1)
Quarter: 2020Q2

REPORT INFORMATION
  Report Type: Spontaneous
  Country: US (occurrence: US)
  Receive Date: 20200414
  Receipt Date: 20200414
  Transmission Date: 20200713
  Serious: No
  Sender: FDA-Public Use
  Company Number: US-GILEAD-2020-0458926

PATIENT
  Sex: Male

DRUGS (3)
  1. VEMLIDY [Suspect]
     Active Substance: TENOFOVIR ALAFENAMIDE FUMARATE
     Indication: CHRONIC HEPATITIS B
     Dosage: 1 DOSAGE FORM, QD
     Route: 048
     Dates: start: 201710
  2. VITAMIN C ACID [Concomitant]
     Active Substance: ASCORBIC ACID
  3. MULTIVITAMIN (16) [Concomitant]
     Active Substance: VITAMINS

REACTIONS (1)
  - Product dose omission [Unknown]
